FAERS Safety Report 5032062-5 (Version None)
Quarter: 2006Q2

REPORT INFORMATION
  Report Type: 
  Country: None (occurrence: None)
  Receive Date: 20060619
  Receipt Date: 20060612
  Transmission Date: 20061013
  Serious: Yes (Other)
  Sender: FDA-Public Use
  Company Number: CHPA2006US05679

PATIENT

DRUGS (1)
  1. TRANSDERM SCOP [Suspect]

REACTIONS (2)
  - DYSPNOEA [None]
  - SWELLING FACE [None]
